FAERS Safety Report 25654069 (Version 1)
Quarter: 2025Q3

REPORT INFORMATION
  Report Type: Spontaneous
  Country: US (occurrence: US)
  Receive Date: 20250807
  Receipt Date: 20250807
  Transmission Date: 20251020
  Serious: Yes (Life-Threatening, Hospitalization)
  Sender: MYLAN
  Company Number: US-MYLANLABS-2025M1064844

PATIENT
  Age: 10 Year
  Sex: Male

DRUGS (16)
  1. DEXAMETHASONE [Suspect]
     Active Substance: DEXAMETHASONE
     Indication: Asthma
  2. DEXAMETHASONE [Suspect]
     Active Substance: DEXAMETHASONE
     Route: 065
  3. DEXAMETHASONE [Suspect]
     Active Substance: DEXAMETHASONE
     Route: 065
  4. DEXAMETHASONE [Suspect]
     Active Substance: DEXAMETHASONE
  5. METHYLPREDNISOLONE [Suspect]
     Active Substance: METHYLPREDNISOLONE
     Indication: Asthma
  6. METHYLPREDNISOLONE [Suspect]
     Active Substance: METHYLPREDNISOLONE
     Route: 042
  7. METHYLPREDNISOLONE [Suspect]
     Active Substance: METHYLPREDNISOLONE
     Route: 042
  8. METHYLPREDNISOLONE [Suspect]
     Active Substance: METHYLPREDNISOLONE
  9. ALBUTEROL [Suspect]
     Active Substance: ALBUTEROL
     Indication: Asthma
  10. ALBUTEROL [Suspect]
     Active Substance: ALBUTEROL
     Route: 065
  11. ALBUTEROL [Suspect]
     Active Substance: ALBUTEROL
     Route: 065
  12. ALBUTEROL [Suspect]
     Active Substance: ALBUTEROL
  13. MAGNESIUM [Suspect]
     Active Substance: MAGNESIUM
     Indication: Asthma
  14. MAGNESIUM [Suspect]
     Active Substance: MAGNESIUM
     Route: 042
  15. MAGNESIUM [Suspect]
     Active Substance: MAGNESIUM
     Route: 042
  16. MAGNESIUM [Suspect]
     Active Substance: MAGNESIUM

REACTIONS (2)
  - Drug ineffective [Unknown]
  - Off label use [Unknown]
